FAERS Safety Report 11739744 (Version 2)
Quarter: 2015Q4

REPORT INFORMATION
  Report Type: Spontaneous
  Country: US (occurrence: US)
  Receive Date: 20151110
  Receipt Date: 20151120
  Transmission Date: 20160304
  Serious: No
  Sender: FDA-Public Use
  Company Number: US-ELI_LILLY_AND_COMPANY-US201208008392

PATIENT
  Sex: Female

DRUGS (1)
  1. FORTEO [Suspect]
     Active Substance: TERIPARATIDE
     Indication: OSTEOPOROSIS
     Dosage: 20 UG, QD
     Route: 058
     Dates: start: 20120824, end: 20121004

REACTIONS (26)
  - Malaise [Unknown]
  - Influenza like illness [Unknown]
  - Headache [Not Recovered/Not Resolved]
  - Sjogren^s syndrome [Unknown]
  - Vision blurred [Unknown]
  - Constipation [Unknown]
  - Asthenia [Unknown]
  - Injection site pain [Unknown]
  - Pain [Unknown]
  - Limb discomfort [Unknown]
  - Nervousness [Unknown]
  - Mood altered [Unknown]
  - Dizziness [Not Recovered/Not Resolved]
  - Nausea [Not Recovered/Not Resolved]
  - Injection site haemorrhage [Unknown]
  - Eye disorder [Unknown]
  - Fear [Unknown]
  - Diverticulitis [Unknown]
  - Appetite disorder [Unknown]
  - Irritability [Unknown]
  - Depressed mood [Unknown]
  - Musculoskeletal discomfort [Unknown]
  - Injection site erythema [Unknown]
  - Feeling hot [Unknown]
  - Anxiety [Unknown]
  - Fatigue [Recovering/Resolving]
